FAERS Safety Report 4631180-0 (Version None)
Quarter: 2005Q2

REPORT INFORMATION
  Report Type: 
  Country: None (occurrence: None)
  Receive Date: 20050407
  Receipt Date: 20050407
  Transmission Date: 20051028
  Serious: Yes (Hospitalization)
  Sender: FDA-Public Use
  Company Number: None

PATIENT
  Age: 75 Year
  Sex: Male

DRUGS (8)
  1. ENBREL [Suspect]
     Indication: PSORIASIS
     Dosage: 50 MG SUBQ , QWK
     Route: 058
  2. PROXON [Concomitant]
  3. NEXIUM [Concomitant]
  4. ASPIRIN [Concomitant]
  5. PLAVIX [Concomitant]
  6. COZAAR [Concomitant]
  7. ADVAIR DISKUS 100/50 [Concomitant]
  8. ATROVENT [Concomitant]

REACTIONS (2)
  - CELLULITIS [None]
  - THERAPY NON-RESPONDER [None]
